FAERS Safety Report 4285337-1 (Version None)
Quarter: 2004Q1

REPORT INFORMATION
  Report Type: 
  Country: None (occurrence: None)
  Receive Date: 20040202
  Receipt Date: 20040116
  Transmission Date: 20041129
  Serious: Yes (Hospitalization)
  Sender: FDA-Public Use
  Company Number: T04-SWE-00361-01

PATIENT
  Age: 61 Year
  Sex: Female

DRUGS (4)
  1. EBIXA (MEMANTINE) [Suspect]
     Indication: DEMENTIA ALZHEIMER'S TYPE
     Dosage: 20 MG QD PO
     Route: 048
     Dates: start: 20030901, end: 20031005
  2. REMINYL [Suspect]
     Indication: DEMENTIA ALZHEIMER'S TYPE
     Dosage: 24 MG QD PO
     Route: 048
     Dates: start: 20020901
  3. NEURONTIN [Concomitant]
  4. REMERON [Concomitant]

REACTIONS (3)
  - DEMENTIA [None]
  - HALLUCINATION [None]
  - TREMOR [None]
